FAERS Safety Report 7953172 (Version 3)
Quarter: 2018Q4

REPORT INFORMATION
  Report Type: Spontaneous
  Country: FR (occurrence: FR)
  Receive Date: 20110520
  Receipt Date: 20181217
  Transmission Date: 20190205
  Serious: Yes (Hospitalization)
  Sender: FDA-Public Use
  Company Number: FR-JNJFOC-20110503658

PATIENT
  Age: 42 Year
  Sex: Male
  Weight: 65 kg

DRUGS (3)
  1. REMICADE [Suspect]
     Active Substance: INFLIXIMAB
     Indication: CROHN^S DISEASE
     Dosage: TOTAL 2 INFUSIONS
     Route: 042
     Dates: start: 200010, end: 200610
  2. HUMIRA [Suspect]
     Active Substance: ADALIMUMAB
     Indication: CROHN^S DISEASE
     Dosage: 40 MG EVERY 2 WEEKS,
     Route: 058
     Dates: start: 200611, end: 20110305
  3. IMUREL [Suspect]
     Active Substance: AZATHIOPRINE SODIUM
     Indication: CROHN^S DISEASE
     Route: 065
     Dates: end: 200701

REACTIONS (3)
  - Hodgkin^s disease [Not Recovered/Not Resolved]
  - Infusion related reaction [Unknown]
  - Hypersensitivity [Unknown]

NARRATIVE: CASE EVENT DATE: 201103
